FAERS Safety Report 8986014 (Version 1)
Quarter: 2012Q4

REPORT INFORMATION
  Report Type: Report from Study
  Country: NL (occurrence: NL)
  Receive Date: 20121226
  Receipt Date: 20121226
  Transmission Date: 20130627
  Serious: Yes (Death, Hospitalization, Other)
  Sender: FDA-Public Use
  Company Number: NL-ASTELLAS-2012EU010987

PATIENT
  Age: 70 Year
  Sex: Male
  Weight: 71 kg

DRUGS (6)
  1. TACROLIMUS SYSTEMIC [Suspect]
     Indication: PRODUCT USED FOR UNKNOWN INDICATION
     Dosage: 4 mg, Unknown/D
     Route: 065
     Dates: start: 20090617
  2. RITUXIMAB [Suspect]
     Indication: RENAL TRANSPLANT
     Dosage: UNK
     Route: 042
     Dates: start: 20090616
  3. AZATHIOPRINE [Suspect]
     Indication: PRODUCT USED FOR UNKNOWN INDICATION
     Dosage: UNK
     Route: 065
     Dates: end: 200909
  4. AZATHIOPRINE [Suspect]
     Dosage: 100 mg, Unknown/D
     Route: 065
     Dates: start: 20091006, end: 20091205
  5. VALGANCICLOVIR [Suspect]
     Indication: PRODUCT USED FOR UNKNOWN INDICATION
     Dosage: 900 mg, Unknown/D
     Route: 065
     Dates: start: 20091127
  6. PREDNISOLON                        /00016201/ [Suspect]
     Indication: PRODUCT USED FOR UNKNOWN INDICATION
     Dosage: 15 mg, Unknown/D
     Route: 065
     Dates: start: 20090616

REACTIONS (6)
  - Large intestinal ulcer [Fatal]
  - Rectal ulcer [Fatal]
  - Urosepsis [Fatal]
  - Cytomegalovirus infection [Unknown]
  - Leukopenia [Unknown]
  - Adenocarcinoma gastric [Unknown]
